FAERS Safety Report 16844739 (Version 1)
Quarter: 2019Q4

REPORT INFORMATION
  Report Type: Spontaneous
  Country: US (occurrence: US)
  Receive Date: 20190924
  Receipt Date: 20190924
  Transmission Date: 20200122
  Serious: Yes (Hospitalization, Other)
  Sender: FDA-Public Use
  Company Number: None

PATIENT
  Age: 78 Year
  Sex: Male
  Weight: 72.45 kg

DRUGS (2)
  1. XTANDI [Suspect]
     Active Substance: ENZALUTAMIDE
     Indication: METASTASIS
     Route: 048
     Dates: start: 20190909, end: 20190919
  2. NONCONTRIBUTORY [Concomitant]

REACTIONS (3)
  - Clonic convulsion [None]
  - Postictal state [None]
  - Urinary incontinence [None]

NARRATIVE: CASE EVENT DATE: 20190919
